FAERS Safety Report 16921395 (Version 6)
Quarter: 2023Q1

REPORT INFORMATION
  Report Type: Spontaneous
  Country: TR (occurrence: TR)
  Receive Date: 20191015
  Receipt Date: 20230130
  Transmission Date: 20230418
  Serious: Yes (Hospitalization, Disabling, Other)
  Sender: FDA-Public Use
  Company Number: TR-SA-2019SA283149

PATIENT
  Age: 52 Year
  Sex: Female
  Weight: 64.998 kg

DRUGS (15)
  1. LEMTRADA [Suspect]
     Active Substance: ALEMTUZUMAB
     Indication: Relapsing-remitting multiple sclerosis
     Dosage: 12 ML, QD
     Route: 041
     Dates: start: 20191008, end: 20191010
  2. LANSOPRAZOLE [Concomitant]
     Active Substance: LANSOPRAZOLE
     Dosage: 1.1 UNK
     Route: 048
  3. PAROL [Concomitant]
     Active Substance: ACETAMINOPHEN
     Dosage: 1.1 UNK
     Route: 048
  4. ZYRTEC [Concomitant]
     Active Substance: CETIRIZINE HYDROCHLORIDE
     Dosage: 1.1 UNK
     Route: 048
  5. AKLOVIR [Concomitant]
     Dosage: 2.1 UNK
     Route: 065
  6. DUXALTA [Concomitant]
     Dosage: 2.1 UNK
     Route: 065
  7. DESYREL [Concomitant]
     Active Substance: TRAZODONE HYDROCHLORIDE
     Dosage: 1.1 UNK
     Route: 065
  8. LIORESAL [Concomitant]
     Active Substance: BACLOFEN
     Dosage: 2.1 UNK
     Route: 065
  9. CRESTOR [Concomitant]
     Active Substance: ROSUVASTATIN CALCIUM
     Dosage: 1.1 UNK
     Route: 065
  10. ALYSE [PREGABALIN] [Concomitant]
     Dosage: 2.1 UNK
     Route: 065
  11. DOLADAMON [CODEINE PHOSPHATE;PARACETAMOL] [Concomitant]
     Dosage: 2.1 UNK
     Route: 065
  12. BETAHISTINE [Concomitant]
     Active Substance: BETAHISTINE
     Dosage: 2.1 UNK
     Route: 065
  13. SICCAPROTECT [Concomitant]
     Dosage: 3.1 UNK
     Route: 065
  14. CARBOXYMETHYLCELLULOSE [Concomitant]
     Active Substance: CARBOXYMETHYLCELLULOSE
     Dosage: 3.1 UNK
     Route: 065
  15. DALFAMPRIDINE [Concomitant]
     Active Substance: DALFAMPRIDINE
     Dosage: UNK
     Route: 065

REACTIONS (15)
  - Post procedural haemorrhage [Unknown]
  - Bedridden [Unknown]
  - Haemorrhage intracranial [Not Recovered/Not Resolved]
  - Loss of consciousness [Unknown]
  - Hemiplegia [Unknown]
  - Unresponsive to stimuli [Unknown]
  - Quadriplegia [Unknown]
  - Cerebral haemorrhage [Unknown]
  - Putamen haemorrhage [Unknown]
  - Headache [Unknown]
  - Intraventricular haemorrhage [Unknown]
  - Cerebral haematoma [Unknown]
  - Hypertension [Recovering/Resolving]
  - Gastrostomy [Unknown]
  - Blood pressure increased [Unknown]

NARRATIVE: CASE EVENT DATE: 20190101
